FAERS Safety Report 8380245-9 (Version None)
Quarter: 2012Q2

REPORT INFORMATION
  Report Type: 
  Country: None (occurrence: None)
  Receive Date: 20120523
  Receipt Date: 20120516
  Transmission Date: 20120825
  Serious: Yes (Other)
  Sender: FDA-Public Use
  Company Number: PHHY2009CA26093

PATIENT
  Sex: Female

DRUGS (4)
  1. SANDOSTATIN LAR [Suspect]
     Dosage: 20 MG, EVERY 4 WEEKS
     Route: 030
     Dates: end: 20070412
  2. SANDOSTATIN LAR [Suspect]
     Dosage: 30 MG, EVERY 4 WEEKS
     Route: 030
  3. SANDOSTATIN LAR [Suspect]
     Indication: ACROMEGALY
     Dosage: 20 MG, QMO
     Route: 030
  4. SANDOSTATIN LAR [Suspect]
     Dosage: 10 MG, QMO
     Route: 030
     Dates: start: 20031217

REACTIONS (11)
  - NAUSEA [None]
  - ABDOMINAL DISTENSION [None]
  - DIARRHOEA [None]
  - RESPIRATORY DISORDER [None]
  - BLOOD PRESSURE INCREASED [None]
  - PHOTOPSIA [None]
  - DEPRESSION [None]
  - PAIN [None]
  - THERMAL BURN [None]
  - INFLUENZA LIKE ILLNESS [None]
  - BLOOD GROWTH HORMONE INCREASED [None]
